FAERS Safety Report 9334737 (Version 2)
Quarter: 2013Q2

REPORT INFORMATION
  Report Type: Spontaneous
  Country: KR (occurrence: KR)
  Receive Date: 20130606
  Receipt Date: 20130618
  Transmission Date: 20140414
  Serious: No
  Sender: FDA-Public Use
  Company Number: KR-ELI_LILLY_AND_COMPANY-KR201305008883

PATIENT
  Sex: Female

DRUGS (3)
  1. HUMALOG 50% LISPRO, 50% NPL [Suspect]
     Indication: TYPE 2 DIABETES MELLITUS
     Dosage: 30 IU, EACH MORNING
     Route: 058
     Dates: start: 201303
  2. HUMALOG 50% LISPRO, 50% NPL [Suspect]
     Dosage: 26 IU, QD
     Route: 058
     Dates: start: 201303
  3. HUMALOG 50% LISPRO, 50% NPL [Suspect]
     Dosage: 16 IU, EACH EVENING
     Route: 058
     Dates: start: 201303

REACTIONS (4)
  - Dyspepsia [Unknown]
  - Cold sweat [Recovered/Resolved]
  - Tremor [Recovered/Resolved]
  - Blood glucose decreased [Unknown]
